FAERS Safety Report 6123594-7 (Version None)
Quarter: 2009Q1

REPORT INFORMATION
  Report Type: 
  Country: None (occurrence: None)
  Receive Date: 20090317
  Receipt Date: 20090317
  Transmission Date: 20090719
  Serious: Yes (Other)
  Sender: FDA-Public Use
  Company Number: None

PATIENT
  Age: 35 Year
  Sex: Male

DRUGS (4)
  1. 100MG Q DAY, PHENXTOIN ?GENERIC [Suspect]
     Indication: AFFECTIVE DISORDER
     Dates: start: 20080522, end: 20081125
  2. 100MG Q DAY, PHENXTOIN ?GENERIC [Suspect]
     Indication: ANXIETY
     Dates: start: 20080522, end: 20081125
  3. 100MG Q DAY, PHENXTOIN ?GENERIC [Suspect]
     Indication: TACHYPHRENIA
     Dates: start: 20080522, end: 20081125
  4. PROZAC [Concomitant]

REACTIONS (4)
  - EMOTIONAL DISTRESS [None]
  - EPIDIDYMAL TENDERNESS [None]
  - PREMATURE EJACULATION [None]
  - SEMEN VOLUME INCREASED [None]
